FAERS Safety Report 8998919 (Version 2)
Quarter: 2013Q1

REPORT INFORMATION
  Report Type: Spontaneous
  Country: US (occurrence: US)
  Receive Date: 20130103
  Receipt Date: 20130107
  Transmission Date: 20140127
  Serious: Yes (Other)
  Sender: FDA-Public Use
  Company Number: US-PFIZER INC-2013000131

PATIENT
  Sex: Male
  Weight: 58.96 kg

DRUGS (5)
  1. VFEND [Suspect]
     Indication: ASPERGILLUS INFECTION
     Dosage: 200 MG, 2X/DAY
  2. SPORANOX [Suspect]
     Indication: ASPERGILLUS INFECTION
     Dosage: 100 MG, 1X/DAY
  3. SPORANOX [Suspect]
     Dosage: 100 MG, 1X/DAY
  4. HUMULIN [Concomitant]
     Indication: TYPE 1 DIABETES MELLITUS
     Dosage: UNK
  5. LANTUS [Concomitant]
     Indication: TYPE 1 DIABETES MELLITUS
     Dosage: UNK

REACTIONS (6)
  - Haemoptysis [Recovered/Resolved]
  - Blister [Unknown]
  - Local swelling [Recovered/Resolved]
  - Myalgia [Recovered/Resolved]
  - Arthralgia [Recovered/Resolved]
  - Oedema [Recovered/Resolved]
